FAERS Safety Report 6148966-6 (Version None)
Quarter: 2009Q2

REPORT INFORMATION
  Report Type: 
  Country: None (occurrence: None)
  Receive Date: 20090408
  Receipt Date: 20090408
  Transmission Date: 20091009
  Serious: Yes (Hospitalization, Other)
  Sender: FDA-Public Use
  Company Number: US-PFIZER INC-2008088058

PATIENT
  Sex: Female
  Weight: 62.727 kg

DRUGS (11)
  1. CHANTIX [Suspect]
     Indication: SMOKING CESSATION THERAPY
     Dates: start: 20080601
  2. PREVACID [Concomitant]
  3. ACETYLSALICYLIC ACID [Concomitant]
  4. PLAVIX [Concomitant]
  5. POTASSIUM CHLORIDE [Concomitant]
  6. FUROSEMIDE [Concomitant]
  7. LORAZEPAM [Concomitant]
  8. DULCOLAX [Concomitant]
  9. LABETALOL HCL [Concomitant]
  10. ZOCOR [Concomitant]
  11. PREDNISONE [Concomitant]

REACTIONS (5)
  - ASTHENIA [None]
  - CARDIAC FAILURE CONGESTIVE [None]
  - DIZZINESS [None]
  - MYOCARDIAL INFARCTION [None]
  - VISION BLURRED [None]
